FAERS Safety Report 6505861-8 (Version None)
Quarter: 2009Q4

REPORT INFORMATION
  Report Type: 
  Country: None (occurrence: None)
  Receive Date: 20091217
  Receipt Date: 20091217
  Transmission Date: 20100525
  Serious: Yes (Other)
  Sender: FDA-Public Use
  Company Number: None

PATIENT
  Age: 70 Year
  Sex: Male
  Weight: 75.3 kg

DRUGS (17)
  1. DEFERASIROX 500 MG NOVARTIS [Suspect]
     Indication: BLOOD IRON DECREASED
     Dosage: 1500 MG QDAY PO ROUGHLY 6 MONTHS
     Route: 048
  2. ACETAMINOPHEN [Concomitant]
  3. DIGOXIN [Concomitant]
  4. DILTIAZEM [Concomitant]
  5. DIPHENHYDRAMINE HCL [Concomitant]
  6. FOLIC ACID [Concomitant]
  7. HYDRALAZINE HCL [Concomitant]
  8. POTASSIUM CHLORIDE [Concomitant]
  9. LISINOPRIL [Concomitant]
  10. METOPROLOL TARTRATE [Concomitant]
  11. MORPHINE [Concomitant]
  12. NITROGLYCERIN [Concomitant]
  13. OXCARBAZEPINE [Concomitant]
  14. ROSUVASTATIN [Concomitant]
  15. TRIAZOLAM [Concomitant]
  16. AMIODARONE [Concomitant]
  17. BUMETANIDE [Concomitant]

REACTIONS (6)
  - CHEST PAIN [None]
  - DYSPNOEA [None]
  - INFECTION [None]
  - LEUKOCYTOSIS [None]
  - MELAENA [None]
  - UPPER GASTROINTESTINAL HAEMORRHAGE [None]
